FAERS Safety Report 5287318-8 (Version None)
Quarter: 2007Q1

REPORT INFORMATION
  Report Type: 
  Country: None (occurrence: None)
  Receive Date: 20070116
  Receipt Date: 20061004
  Transmission Date: 20070707
  Serious: No
  Sender: FDA-Public Use
  Company Number: 2006SP003555

PATIENT
  Age: 46 Year
  Sex: Female
  Weight: 72.5755 kg

DRUGS (4)
  1. LUNESTA [Suspect]
     Indication: FATIGUE
     Dosage: 2 MG; ORAL
     Route: 048
     Dates: start: 20060812, end: 20060801
  2. LUNESTA [Suspect]
     Indication: RESTLESSNESS
     Dosage: 2 MG; ORAL
     Route: 048
     Dates: start: 20060812, end: 20060801
  3. LISINOPRIL AND HYDROCHLOROTHIAZIDE [Concomitant]
  4. VITAMINS [Concomitant]

REACTIONS (1)
  - DYSGEUSIA [None]
